FAERS Safety Report 4458184-5 (Version None)
Quarter: 2004Q3

REPORT INFORMATION
  Report Type: 
  Country: None (occurrence: None)
  Receive Date: 20040922
  Receipt Date: 20040915
  Transmission Date: 20050211
  Serious: Yes (Hospitalization)
  Sender: FDA-Public Use
  Company Number: ERP04000306

PATIENT
  Sex: Female

DRUGS (3)
  1. ACTONEL [Suspect]
     Dosage: 35 MG, ORAL
     Route: 048
     Dates: start: 20040601, end: 20040801
  2. SPASMINE (VALERIANA OFFICINALIS ROOT DRY EXTRACT, CRATAEGUS SOO FLOWER [Concomitant]
  3. ZANTAC (RANITDINE HYDROCGHLORIDE) [Concomitant]

REACTIONS (1)
  - HAEMOLYTIC ANAEMIA [None]
